FAERS Safety Report 9308512 (Version 1)
Quarter: 2013Q2

REPORT INFORMATION
  Report Type: Spontaneous
  Country: GR (occurrence: GR)
  Receive Date: 20130524
  Receipt Date: 20130524
  Transmission Date: 20140414
  Serious: Yes (Hospitalization, Other)
  Sender: FDA-Public Use
  Company Number: PHHY2013GR051431

PATIENT
  Age: 23 Year
  Sex: Male

DRUGS (7)
  1. TEGRETOL CR [Suspect]
     Indication: DYSKINESIA
     Dosage: 200 MG, TID
  2. TEGRETOL CR [Suspect]
     Dosage: 1 DF, BID (OF CONCENTRATION  MG)
  3. LEPONEX [Suspect]
     Dosage: 1 DF, TID
  4. LEPONEX [Suspect]
     Dosage: UNK UKN, UNK (REDUCED TO 25 MG 1-1 OR 2-1 )
  5. CITALOPRAM [Concomitant]
     Dosage: UNK UKN, UNK
  6. CITALOPRAM [Concomitant]
     Dosage: 20 MG/DAY
  7. HALOPERIDOL [Concomitant]
     Indication: DYSKINESIA
     Dosage: 1 MG, BID

REACTIONS (18)
  - Mental disorder due to a general medical condition [Unknown]
  - Suicidal ideation [Unknown]
  - Affect lability [Unknown]
  - Apathy [Unknown]
  - Irritability [Unknown]
  - Depressive symptom [Unknown]
  - Anxiety [Unknown]
  - Cognitive disorder [Unknown]
  - Disinhibition [Unknown]
  - Decreased interest [Unknown]
  - Fall [Unknown]
  - Haematocrit decreased [Unknown]
  - Movement disorder [Unknown]
  - Haemoglobin decreased [Unknown]
  - Crying [Unknown]
  - Hypersensitivity [Unknown]
  - Weight increased [Unknown]
  - Somnolence [Unknown]
